FAERS Safety Report 4600858-7 (Version None)
Quarter: 2005Q1

REPORT INFORMATION
  Report Type: 
  Country: None (occurrence: None)
  Receive Date: 20050304
  Receipt Date: 20050221
  Transmission Date: 20050727
  Serious: Yes (Hospitalization)
  Sender: FDA-Public Use
  Company Number: 2004CG02373

PATIENT
  Age: 52 Year
  Sex: Male
  Weight: 88 kg

DRUGS (5)
  1. CRESTOR [Suspect]
     Indication: HYPERCHOLESTEROLAEMIA
     Dosage: 10 MG QD PO
     Route: 048
     Dates: start: 20040601, end: 20040914
  2. CELECTOL [Suspect]
     Indication: CORONARY ARTERY INSUFFICIENCY
     Dosage: 200 MG QD PO
     Route: 048
     Dates: start: 20020701, end: 20040918
  3. PLAVIX [Concomitant]
  4. TRIATEC [Concomitant]
  5. AMARYL [Concomitant]

REACTIONS (5)
  - ALVEOLITIS FIBROSING [None]
  - CHEST PAIN [None]
  - LUNG DISORDER [None]
  - PLEURAL EFFUSION [None]
  - PNEUMONIA [None]
